FAERS Safety Report 7531768-3 (Version None)
Quarter: 2011Q2

REPORT INFORMATION
  Report Type: 
  Country: None (occurrence: None)
  Receive Date: 20110601
  Receipt Date: 20100419
  Transmission Date: 20111010
  Serious: Yes (Hospitalization, Other)
  Sender: FDA-Public Use
  Company Number: 2010-1332

PATIENT
  Age: 73 Year
  Sex: Male

DRUGS (7)
  1. LOPERAMIDE [Concomitant]
  2. HALOPERIDOL [Concomitant]
  3. APOMORPHINE (APO-GO) (APOMORPHINE) [Suspect]
     Indication: RESTLESS LEGS SYNDROME
     Dosage: 30 MG (30 MG, 1 IN 1 D), SUBCUTANEOUS
     Route: 058
     Dates: start: 20000301, end: 20100326
  4. CLONAZEPAM [Concomitant]
  5. METFORMIN HCL [Concomitant]
  6. SIMVASTATIN [Concomitant]
  7. GLICLAZIDE (GLICLAZIDE) [Concomitant]

REACTIONS (7)
  - INFUSION SITE DISCOLOURATION [None]
  - DIARRHOEA [None]
  - INJECTION SITE MASS [None]
  - INJECTION SITE SWELLING [None]
  - INJECTION SITE CELLULITIS [None]
  - INJECTION SITE NECROSIS [None]
  - SKIN LESION [None]
